FAERS Safety Report 19205299 (Version 1)
Quarter: 2021Q2

REPORT INFORMATION
  Report Type: Spontaneous
  Country: US (occurrence: US)
  Receive Date: 20210502
  Receipt Date: 20210502
  Transmission Date: 20210717
  Serious: Yes (Disabling, Other)
  Sender: FDA-Public Use
  Company Number: None

PATIENT
  Age: 37 Year
  Sex: Female
  Weight: 65.7 kg

DRUGS (2)
  1. NP THYROID [Suspect]
     Active Substance: LEVOTHYROXINE\LIOTHYRONINE
     Indication: HYPOTHYROIDISM
     Dosage: ?          QUANTITY:90 TABLET(S);?
     Route: 048
     Dates: start: 20160601
  2. NATURELO WOMENS VITAMIN [Concomitant]

REACTIONS (7)
  - Arthralgia [None]
  - General physical health deterioration [None]
  - Dyspnoea [None]
  - Heavy menstrual bleeding [None]
  - Fatigue [None]
  - Quality of life decreased [None]
  - Weight increased [None]

NARRATIVE: CASE EVENT DATE: 20210426
